FAERS Safety Report 21565701 (Version 1)
Quarter: 2022Q4

REPORT INFORMATION
  Report Type: Spontaneous
  Country: US (occurrence: None)
  Receive Date: 20221107
  Receipt Date: 20221107
  Transmission Date: 20230113
  Serious: Yes (Other)
  Sender: FDA-Public Use
  Company Number: None

PATIENT
  Age: 64 Year
  Sex: Female
  Weight: 108 kg

DRUGS (20)
  1. PAXLOVID [Suspect]
     Active Substance: NIRMATRELVIR\RITONAVIR
     Indication: COVID-19
     Dosage: FREQUENCY : TWICE A DAY;?
     Route: 048
     Dates: start: 20220820, end: 20220820
  2. LEVOTHYROXINE [Concomitant]
     Active Substance: LEVOTHYROXINE
  3. ATENOLOL [Concomitant]
     Active Substance: ATENOLOL
  4. ESTRADIOL [Concomitant]
     Active Substance: ESTRADIOL
  5. CITALOPRAM [Concomitant]
     Active Substance: CITALOPRAM HYDROBROMIDE
  6. HYDROCHLOROTHIAZIDE\LOSARTAN POTASSIUM [Concomitant]
     Active Substance: HYDROCHLOROTHIAZIDE\LOSARTAN POTASSIUM
  7. COLESEVELAM [Concomitant]
     Active Substance: COLESEVELAM
  8. TROSPIUM [Concomitant]
     Active Substance: TROSPIUM
  9. PROGESTERONE [Concomitant]
     Active Substance: PROGESTERONE
  10. IBUPROFEN [Concomitant]
     Active Substance: IBUPROFEN
  11. WIXELA INHUB [Concomitant]
     Active Substance: FLUTICASONE PROPIONATE\SALMETEROL XINAFOATE
  12. VENTOLIN [Concomitant]
     Active Substance: ALBUTEROL SULFATE
  13. MELOXICAM [Concomitant]
     Active Substance: MELOXICAM
  14. Hoyscyamine [Concomitant]
  15. PREDNISONE [Concomitant]
     Active Substance: PREDNISONE
  16. VITAMIN D [Concomitant]
     Active Substance: VITAMIN D NOS
  17. VITAMIN B COMPLEX [Concomitant]
     Active Substance: CYANOCOBALAMIN\DEXPANTHENOL\NIACINAMIDE\PYRIDOXINE HYDROCHLORIDE\RIBOFLAVIN 5^-PHOSPHATE SODIUM\THIA
  18. ASPIRIN [Concomitant]
     Active Substance: ASPIRIN
  19. ACETAMINOPHEN [Concomitant]
     Active Substance: ACETAMINOPHEN
  20. NYQUIL COLD AND FLU [Concomitant]
     Active Substance: ACETAMINOPHEN\DEXTROMETHORPHAN HYDROBROMIDE\DOXYLAMINE SUCCINATE

REACTIONS (3)
  - Vomiting [None]
  - Diarrhoea [None]
  - Adverse drug reaction [None]

NARRATIVE: CASE EVENT DATE: 20220820
